FAERS Safety Report 18314049 (Version 1)
Quarter: 2020Q3

REPORT INFORMATION
  Report Type: Report from Study
  Country: None (occurrence: DE)
  Receive Date: 20200925
  Receipt Date: 20200925
  Transmission Date: 20201103
  Serious: Yes (Life-Threatening, Hospitalization)
  Sender: FDA-Public Use
  Company Number: DE-ABBVIE-18P-062-3094197-00

PATIENT
  Age: 59 Year
  Sex: Male
  Weight: 105 kg

DRUGS (51)
  1. RITUXIMAB. [Concomitant]
     Active Substance: RITUXIMAB
     Indication: MANTLE CELL LYMPHOMA
     Dosage: CYCLE 1
     Route: 065
     Dates: start: 20170727, end: 20170801
  2. DOXORUBICIN [Concomitant]
     Active Substance: DOXORUBICIN
     Route: 065
     Dates: end: 20171205
  3. DEXAMETHASONE. [Concomitant]
     Active Substance: DEXAMETHASONE
     Indication: MANTLE CELL LYMPHOMA
     Dosage: CYCLE 2
     Route: 065
     Dates: start: 20170816, end: 20170820
  4. CYTARABINE. [Concomitant]
     Active Substance: CYTARABINE
     Indication: MANTLE CELL LYMPHOMA
     Dosage: CYCLE 2
     Route: 065
     Dates: start: 20170816, end: 20170820
  5. CISPLATIN. [Concomitant]
     Active Substance: CISPLATIN
     Dosage: CYCLE 6
     Route: 065
     Dates: start: 20171130, end: 20171205
  6. DOLANTIN [Concomitant]
     Active Substance: MEPERIDINE
     Indication: INFUSION RELATED REACTION
     Route: 065
     Dates: start: 20170727, end: 20170727
  7. ALLOPURINOL. [Concomitant]
     Active Substance: ALLOPURINOL
     Indication: PROPHYLAXIS
     Route: 065
     Dates: start: 20170728, end: 20170810
  8. RITUXIMAB. [Concomitant]
     Active Substance: RITUXIMAB
     Dosage: CYCLE 3
     Route: 065
     Dates: start: 20170906, end: 20170910
  9. PREDNISONE. [Concomitant]
     Active Substance: PREDNISONE
     Indication: MANTLE CELL LYMPHOMA
     Dosage: CYCLE 1
     Route: 065
     Dates: start: 20170727, end: 20170801
  10. CIPROFLOXACIN. [Concomitant]
     Active Substance: CIPROFLOXACIN
     Indication: ERYSIPELAS
     Route: 065
     Dates: start: 20171015, end: 20171015
  11. CYCLOPHOSPHAMIDE. [Concomitant]
     Active Substance: CYCLOPHOSPHAMIDE
     Route: 065
     Dates: end: 20171205
  12. VINCRISTINE [Concomitant]
     Active Substance: VINCRISTINE
     Dosage: CYCLE 3
     Route: 065
     Dates: start: 20170906, end: 20170910
  13. CYTARABINE. [Concomitant]
     Active Substance: CYTARABINE
     Dosage: CYCLE 4
     Route: 065
     Dates: start: 20170927, end: 20171001
  14. RANITIDINE. [Concomitant]
     Active Substance: RANITIDINE
     Indication: DYSPEPSIA
     Route: 065
     Dates: start: 20170727
  15. DIMENHYDRINATE. [Concomitant]
     Active Substance: DIMENHYDRINATE
     Indication: NAUSEA
     Route: 065
     Dates: start: 20170820
  16. IBRUTINIB [Suspect]
     Active Substance: IBRUTINIB
     Route: 048
     Dates: start: 20180121, end: 20180208
  17. RITUXIMAB. [Concomitant]
     Active Substance: RITUXIMAB
     Dosage: CYCLE 4
     Route: 065
     Dates: start: 20170927, end: 20171001
  18. VINCRISTINE [Concomitant]
     Active Substance: VINCRISTINE
     Dosage: CYCLE 5
     Route: 065
     Dates: start: 20171110, end: 20171114
  19. PREDNISONE. [Concomitant]
     Active Substance: PREDNISONE
     Dosage: CYCLE 3
     Route: 065
     Dates: start: 20170906, end: 20170910
  20. RANITIDINE. [Concomitant]
     Active Substance: RANITIDINE
     Indication: INFUSION RELATED REACTION
     Route: 065
     Dates: start: 20170816
  21. PANTOPRAZOLE [Concomitant]
     Active Substance: PANTOPRAZOLE
     Indication: PROPHYLACTIC CHEMOTHERAPY
     Route: 065
     Dates: start: 20170727
  22. DECORTIN [Concomitant]
     Active Substance: PREDNISONE
     Indication: PROPHYLACTIC CHEMOTHERAPY
     Route: 065
     Dates: start: 20170727
  23. EMEND [Concomitant]
     Active Substance: APREPITANT
     Indication: PROPHYLAXIS OF NAUSEA AND VOMITING
     Route: 065
     Dates: start: 20170817
  24. CYCLOPHOSPHAMIDE. [Concomitant]
     Active Substance: CYCLOPHOSPHAMIDE
     Indication: MANTLE CELL LYMPHOMA
     Dosage: CYCLE 1
     Route: 065
     Dates: start: 20170727, end: 20170801
  25. DOXORUBICIN [Concomitant]
     Active Substance: DOXORUBICIN
     Indication: MANTLE CELL LYMPHOMA
     Dosage: CYCLE 1
     Route: 065
     Dates: start: 20170727, end: 20170801
  26. VINCRISTINE [Concomitant]
     Active Substance: VINCRISTINE
     Indication: MANTLE CELL LYMPHOMA
     Dosage: CYCLE 1
     Route: 065
     Dates: start: 20170727, end: 20170801
  27. DEXAMETHASONE. [Concomitant]
     Active Substance: DEXAMETHASONE
     Dosage: CYCLE 4
     Route: 065
     Dates: start: 20170927, end: 20171001
  28. CYTARABINE. [Concomitant]
     Active Substance: CYTARABINE
     Dosage: CYCLE 6
     Route: 065
     Dates: start: 20171130, end: 20171205
  29. CISPLATIN. [Concomitant]
     Active Substance: CISPLATIN
     Dosage: CYCLE 4
     Route: 065
     Dates: start: 20170927, end: 20171001
  30. RANITIDINE. [Concomitant]
     Active Substance: RANITIDINE
     Route: 065
     Dates: start: 20170906
  31. MESNA. [Concomitant]
     Active Substance: MESNA
     Indication: PROPHYLACTIC CHEMOTHERAPY
     Route: 065
     Dates: start: 20170727
  32. METOCLOPRAMIDE. [Concomitant]
     Active Substance: METOCLOPRAMIDE
     Indication: NAUSEA
     Route: 065
     Dates: start: 20170727
  33. PIPERACILLIN. [Concomitant]
     Active Substance: PIPERACILLIN SODIUM
     Indication: ERYSIPELAS
     Route: 065
     Dates: start: 20171015
  34. RITUXIMAB. [Concomitant]
     Active Substance: RITUXIMAB
     Dosage: CYCLE 2
     Route: 065
     Dates: start: 20170816, end: 20170820
  35. RITUXIMAB. [Concomitant]
     Active Substance: RITUXIMAB
     Dosage: CYCLE 5
     Route: 065
     Dates: start: 20171110, end: 20171114
  36. PREDNISONE. [Concomitant]
     Active Substance: PREDNISONE
     Dosage: CYCLE 5
     Route: 065
     Dates: start: 20171110, end: 20171114
  37. CISPLATIN. [Concomitant]
     Active Substance: CISPLATIN
     Indication: MANTLE CELL LYMPHOMA
     Dosage: CYCLE 2
     Route: 065
     Dates: start: 20170816, end: 20170820
  38. G?CSF [Concomitant]
     Active Substance: GRANULOCYTE COLONY-STIMULATING FACTOR NOS
     Indication: PROPHYLACTIC CHEMOTHERAPY
     Route: 065
     Dates: start: 20170728
  39. FENISTIL [Concomitant]
     Active Substance: DIMETHINDENE
     Indication: NAUSEA
     Route: 065
     Dates: start: 20170727
  40. IBRUTINIB [Suspect]
     Active Substance: IBRUTINIB
     Indication: MANTLE CELL LYMPHOMA
     Route: 048
     Dates: start: 20170728, end: 20180119
  41. RITUXIMAB. [Concomitant]
     Active Substance: RITUXIMAB
     Dosage: CYCLE 6
     Route: 065
     Dates: start: 20171130, end: 20171205
  42. RITUXIMAB. [Concomitant]
     Active Substance: RITUXIMAB
     Route: 065
     Dates: start: 20180119
  43. CYCLOPHOSPHAMIDE. [Concomitant]
     Active Substance: CYCLOPHOSPHAMIDE
     Dosage: CYCLE 3
     Route: 065
     Dates: start: 20170906, end: 20170910
  44. CYCLOPHOSPHAMIDE. [Concomitant]
     Active Substance: CYCLOPHOSPHAMIDE
     Dosage: CYCLE 5
     Route: 065
     Dates: start: 20171110, end: 20171114
  45. DOXORUBICIN [Concomitant]
     Active Substance: DOXORUBICIN
     Dosage: CYCLE 3
     Route: 065
     Dates: start: 20170906, end: 20170910
  46. VINCRISTINE [Concomitant]
     Active Substance: VINCRISTINE
     Route: 065
     Dates: end: 20171205
  47. PREDNISONE. [Concomitant]
     Active Substance: PREDNISONE
     Route: 065
     Dates: end: 20171205
  48. TAZOBACTAM [Concomitant]
     Active Substance: TAZOBACTAM
     Indication: ERYSIPELAS
     Route: 065
     Dates: start: 20171015
  49. DOXORUBICIN [Concomitant]
     Active Substance: DOXORUBICIN
     Dosage: CYCLE 5
     Route: 065
     Dates: start: 20171110, end: 20171114
  50. DEXAMETHASONE. [Concomitant]
     Active Substance: DEXAMETHASONE
     Dosage: CYCLE 6
     Route: 065
     Dates: start: 20171130, end: 20171205
  51. PARACETAMOL [Concomitant]
     Active Substance: ACETAMINOPHEN
     Indication: PROPHYLACTIC CHEMOTHERAPY
     Route: 065
     Dates: start: 20170727, end: 20171130

REACTIONS (2)
  - Tumour lysis syndrome [Recovering/Resolving]
  - Infusion related reaction [Recovered/Resolved]

NARRATIVE: CASE EVENT DATE: 20180119
